FAERS Safety Report 11484848 (Version 1)
Quarter: 2015Q3

REPORT INFORMATION
  Report Type: Spontaneous
  Country: US (occurrence: None)
  Receive Date: 20150909
  Receipt Date: 20150909
  Transmission Date: 20151125
  Serious: Yes (Other)
  Sender: FDA-Public Use
  Company Number: US-MDT-ADR-2015-01736

PATIENT
  Age: 43 Year
  Sex: Female

DRUGS (2)
  1. BACLOFEN INTRATHECAL 2000 MCG/ML [Suspect]
     Active Substance: BACLOFEN
     Dosage: UNK
  2. PRIALT [Suspect]
     Active Substance: ZICONOTIDE ACETATE
     Dosage: UNK

REACTIONS (5)
  - Nausea [None]
  - Drug withdrawal syndrome [None]
  - Therapeutic response decreased [None]
  - Muscle spasticity [None]
  - Pruritus [None]
